FAERS Safety Report 7571666-2 (Version None)
Quarter: 2011Q2

REPORT INFORMATION
  Report Type: 
  Country: None (occurrence: None)
  Receive Date: 20110624
  Receipt Date: 20110613
  Transmission Date: 20111010
  Serious: Yes (Other)
  Sender: FDA-Public Use
  Company Number: JP-MERCK-1105USA03968

PATIENT
  Age: 86 Year
  Sex: Female
  Weight: 41 kg

DRUGS (13)
  1. LANIRAPID [Concomitant]
     Indication: ATRIAL FIBRILLATION
     Route: 048
  2. WARFARIN [Concomitant]
     Indication: THROMBOSIS PROPHYLAXIS
     Route: 048
  3. UNASYN [Concomitant]
     Indication: INFECTION
     Route: 065
     Dates: start: 20110217, end: 20110224
  4. LANIRAPID [Concomitant]
     Indication: CARDIAC FAILURE CONGESTIVE
     Route: 048
  5. KINEDAK [Concomitant]
     Indication: DIABETIC NEUROPATHY
     Route: 048
  6. ROCEPHIN [Concomitant]
     Indication: INFECTION
     Route: 065
     Dates: start: 20110225, end: 20110323
  7. SODIUM CHLORIDE [Concomitant]
     Route: 065
  8. PEPCID RPD [Suspect]
     Indication: PROPHYLAXIS AGAINST GASTROINTESTINAL ULCER
     Route: 048
     Dates: start: 20110217, end: 20110303
  9. BUFFERIN [Concomitant]
     Indication: THROMBOSIS PROPHYLAXIS
     Route: 048
  10. SIGMART [Concomitant]
     Indication: ISCHAEMIC HEART DISEASE PROPHYLAXIS
     Route: 048
  11. VEEN F [Concomitant]
     Indication: CEREBRAL INFARCTION
     Route: 065
     Dates: start: 20110213, end: 20110218
  12. RADICUT [Concomitant]
     Indication: PROPHYLAXIS
     Route: 065
     Dates: start: 20110213, end: 20110217
  13. FLANOS [Concomitant]
     Indication: INFECTION
     Route: 065
     Dates: start: 20110303, end: 20110323

REACTIONS (2)
  - RESTLESSNESS [None]
  - OVERDOSE [None]
